FAERS Safety Report 13379559 (Version 1)
Quarter: 2017Q1

REPORT INFORMATION
  Report Type: Spontaneous
  Country: US (occurrence: US)
  Receive Date: 20170328
  Receipt Date: 20170328
  Transmission Date: 20170429
  Serious: No
  Sender: FDA-Public Use
  Company Number: US-ELI_LILLY_AND_COMPANY-US201608000187

PATIENT
  Age: 46 Year
  Sex: Male

DRUGS (6)
  1. CYMBALTA [Suspect]
     Active Substance: DULOXETINE HYDROCHLORIDE
     Dosage: 30 MG, QOD
     Route: 048
     Dates: start: 20131107
  2. CYMBALTA [Suspect]
     Active Substance: DULOXETINE HYDROCHLORIDE
     Indication: PRODUCT USED FOR UNKNOWN INDICATION
     Dosage: UNK, UNKNOWN
     Route: 065
  3. CYMBALTA [Suspect]
     Active Substance: DULOXETINE HYDROCHLORIDE
     Dosage: 60 MG, QD
     Route: 048
     Dates: start: 20110911
  4. CYMBALTA [Suspect]
     Active Substance: DULOXETINE HYDROCHLORIDE
     Dosage: 20 MG, QD
     Route: 048
     Dates: start: 20131209
  5. CYMBALTA [Suspect]
     Active Substance: DULOXETINE HYDROCHLORIDE
     Dosage: 30 MG, QD
     Route: 048
     Dates: start: 20131119
  6. CYMBALTA [Suspect]
     Active Substance: DULOXETINE HYDROCHLORIDE
     Dosage: 5 MG, UNKNOWN
     Route: 065
     Dates: start: 20131230

REACTIONS (15)
  - Depression [Unknown]
  - Anxiety [Unknown]
  - Irritability [Unknown]
  - Headache [Unknown]
  - Asthenia [Unknown]
  - Nightmare [Unknown]
  - Sensory disturbance [Unknown]
  - Lethargy [Unknown]
  - Pain [Unknown]
  - Drug withdrawal syndrome [Unknown]
  - Thought blocking [Unknown]
  - Tearfulness [Unknown]
  - Insomnia [Unknown]
  - Aphasia [Unknown]
  - Fatigue [Unknown]

NARRATIVE: CASE EVENT DATE: 20131107
